FAERS Safety Report 8602318-5 (Version None)
Quarter: 2012Q2

REPORT INFORMATION
  Report Type: 
  Country: None (occurrence: None)
  Receive Date: 20120423
  Receipt Date: 20080805
  Transmission Date: 20120825
  Serious: Yes (Other)
  Sender: FDA-Public Use
  Company Number: PHEH2008US06873

PATIENT
  Sex: Female

DRUGS (1)
  1. FEMARA [Suspect]
     Dates: start: 20060901

REACTIONS (12)
  - BACK PAIN [None]
  - ARTHRALGIA [None]
  - MEMORY IMPAIRMENT [None]
  - ATROPHIC VULVOVAGINITIS [None]
  - OSTEOPENIA [None]
  - SLEEP DISORDER [None]
  - FATIGUE [None]
  - OSTEOARTHRITIS [None]
  - PAIN IN EXTREMITY [None]
  - VULVOVAGINAL PRURITUS [None]
  - MYALGIA [None]
  - VULVOVAGINAL DRYNESS [None]
